FAERS Safety Report 5118558-6 (Version None)
Quarter: 2006Q3

REPORT INFORMATION
  Report Type: 
  Country: None (occurrence: None)
  Receive Date: 20060927
  Receipt Date: 20060912
  Transmission Date: 20061208
  Serious: Yes (Hospitalization)
  Sender: FDA-Public Use
  Company Number: PHBS2006DE13961

PATIENT
  Age: 45 Year
  Sex: Male
  Weight: 115 kg

DRUGS (4)
  1. CYCLOSPORINE [Suspect]
     Indication: RENAL AND PANCREAS TRANSPLANT
     Dosage: 500 MG/D
  2. PREDNISONE [Suspect]
     Indication: RENAL AND PANCREAS TRANSPLANT
     Dosage: 5 MG/D
  3. MYCOPHENOLATE MOFETIL [Suspect]
     Indication: RENAL AND PANCREAS TRANSPLANT
     Dosage: 2 G/D
  4. CO-TRIMOXAZOLE [Concomitant]

REACTIONS (15)
  - BLOOD LACTATE DEHYDROGENASE INCREASED [None]
  - CD4 LYMPHOCYTES DECREASED [None]
  - CD8 LYMPHOCYTES DECREASED [None]
  - DIALYSIS [None]
  - DIFFUSE LARGE B-CELL LYMPHOMA [None]
  - EPSTEIN-BARR VIRUS TEST POSITIVE [None]
  - HAEMOLYTIC URAEMIC SYNDROME [None]
  - LYMPHOPENIA [None]
  - LYMPHOPROLIFERATIVE DISORDER [None]
  - NIGHT SWEATS [None]
  - PAIN [None]
  - PANCREATITIS [None]
  - RENAL FAILURE ACUTE [None]
  - THERAPY NON-RESPONDER [None]
  - THROMBOTIC MICROANGIOPATHY [None]
